FAERS Safety Report 7957864-4 (Version None)
Quarter: 2011Q4

REPORT INFORMATION
  Report Type: 
  Country: None (occurrence: None)
  Receive Date: 20111205
  Receipt Date: 20111123
  Transmission Date: 20120403
  Serious: Yes (Hospitalization, Other)
  Sender: FDA-Public Use
  Company Number: KR-MPIJNJ-2011-05693

PATIENT

DRUGS (8)
  1. VELCADE [Suspect]
     Indication: MULTIPLE MYELOMA
     Dosage: 1.3 MG/M2, UNK
     Route: 042
     Dates: start: 20110715, end: 20111021
  2. VELCADE [Suspect]
     Dosage: 1.0 MG/M2, UNK
     Route: 042
     Dates: start: 20111123, end: 20111123
  3. MELPHALAN HYDROCHLORIDE [Suspect]
     Indication: MULTIPLE MYELOMA
     Dosage: 9 MG/M2, UNK
     Route: 042
     Dates: start: 20110715, end: 20111014
  4. CALCIUM CARBONATE [Concomitant]
     Indication: SUPPLEMENTATION THERAPY
     Dosage: UNK
     Route: 048
     Dates: start: 20110805
  5. IRCODIN [Concomitant]
     Indication: ANALGESIC THERAPY
     Dosage: 5 MG, UNK
     Route: 048
     Dates: start: 20110621
  6. PREDNISOLONE [Suspect]
     Indication: MULTIPLE MYELOMA
     Dosage: 60 MG/M2, UNK
     Route: 042
     Dates: start: 20110715, end: 20111014
  7. MUCOSTA [Concomitant]
     Dosage: UNK
     Route: 048
     Dates: start: 20110620
  8. PARACETA [Concomitant]
     Indication: ANALGESIC THERAPY
     Dosage: UNK
     Route: 048
     Dates: start: 20111010

REACTIONS (2)
  - BRONCHOPNEUMONIA [None]
  - NEUROPATHY PERIPHERAL [None]
